FAERS Safety Report 7418042-0 (Version None)
Quarter: 2011Q2

REPORT INFORMATION
  Report Type: 
  Country: None (occurrence: None)
  Receive Date: 20110415
  Receipt Date: 20110408
  Transmission Date: 20111010
  Serious: Yes (Other)
  Sender: FDA-Public Use
  Company Number: FR-ROCHE-770456

PATIENT
  Sex: Female

DRUGS (2)
  1. CORTICOSTEROIDS [Concomitant]
  2. ROACTEMRA [Suspect]
     Route: 065

REACTIONS (3)
  - EAR LOBE INFECTION [None]
  - ERYSIPELAS [None]
  - SKIN NECROSIS [None]
